FAERS Safety Report 4816439-6 (Version None)
Quarter: 2005Q4

REPORT INFORMATION
  Report Type: 
  Country: None (occurrence: None)
  Receive Date: 20051028
  Receipt Date: 20050922
  Transmission Date: 20060501
  Serious: Yes (Death)
  Sender: FDA-Public Use
  Company Number: DSA_27313_2005

PATIENT
  Age: 17 Year
  Sex: Female

DRUGS (4)
  1. DILTIAZEM HCL [Suspect]
     Dosage: DF
  2. ZOPICLONE [Suspect]
     Dosage: DF
  3. ACETAMINOPHEN [Suspect]
     Dosage: DF
  4. MIRTAZAPINE [Suspect]
     Dosage: DF

REACTIONS (2)
  - COMPLETED SUICIDE [None]
  - MULTIPLE DRUG OVERDOSE INTENTIONAL [None]
